FAERS Safety Report 6704332-3 (Version None)
Quarter: 2010Q2

REPORT INFORMATION
  Report Type: 
  Country: None (occurrence: None)
  Receive Date: 20100423
  Receipt Date: 20100128
  Transmission Date: 20101027
  Serious: No
  Sender: FDA-Public Use
  Company Number: ALL1-2010-00477

PATIENT

DRUGS (1)
  1. VYVANSE [Suspect]
     Indication: DRUG USE FOR UNKNOWN INDICATION
     Dosage: 50 MG, 1X/DAY:QD,ORAL
     Route: 048

REACTIONS (2)
  - HYPOAESTHESIA [None]
  - PARAESTHESIA [None]
